FAERS Safety Report 17413069 (Version 1)
Quarter: 2020Q1

REPORT INFORMATION
  Report Type: Spontaneous
  Country: US (occurrence: US)
  Receive Date: 20200212
  Receipt Date: 20200212
  Transmission Date: 20200409
  Serious: Yes (Death)
  Sender: FDA-Public Use
  Company Number: None

PATIENT
  Age: 72 Year
  Sex: Male

DRUGS (13)
  1. SERTRALINE TAB 25MG [Concomitant]
     Dates: start: 20190930, end: 20200123
  2. ATORVASTATIN TAB 80MG [Concomitant]
     Dates: start: 20191118, end: 20200123
  3. STIOLTO AER 2.5-2.5 [Concomitant]
     Dates: start: 20200103, end: 20200123
  4. STIOLTO AER 2.5-2.5 [Concomitant]
     Dates: start: 20191226, end: 20200123
  5. SILDENAFIL. [Suspect]
     Active Substance: SILDENAFIL
     Indication: ESSENTIAL HYPERTENSION
     Dosage: ?          OTHER FREQUENCY:ONCE EVERY 8 HOURS;?
     Route: 048
     Dates: start: 20200116, end: 20200123
  6. ZOLPIDEM [Concomitant]
     Active Substance: ZOLPIDEM TARTRATE
     Dates: start: 20200116, end: 20200123
  7. ATORVASTATIN TAB 80MG [Concomitant]
     Dates: start: 20190930, end: 20200123
  8. SERTRALINE TAB 25MG [Concomitant]
     Dates: start: 20191123, end: 20200123
  9. FUROSEMIDE TAB 40MG [Concomitant]
     Dates: start: 20200115, end: 20200123
  10. GLIPIZIDE ER TAB 5MG [Concomitant]
     Dates: start: 20190916, end: 20200123
  11. SERTRALINE TAB 25MG [Concomitant]
     Dates: start: 20191001, end: 20200123
  12. GABAPENTIN CAP 100MG [Concomitant]
     Dates: start: 20191111, end: 20200123
  13. VALACYCLOVIR TAB 500MG [Concomitant]
     Dates: start: 20190822, end: 20200123

REACTIONS (1)
  - Death [None]

NARRATIVE: CASE EVENT DATE: 20200123
